FAERS Safety Report 7437665-6 (Version None)
Quarter: 2011Q2

REPORT INFORMATION
  Report Type: 
  Country: None (occurrence: None)
  Receive Date: 20110426
  Receipt Date: 20110414
  Transmission Date: 20111010
  Serious: Yes (Hospitalization)
  Sender: FDA-Public Use
  Company Number: JP-ROCHE-767465

PATIENT
  Sex: Male
  Weight: 57 kg

DRUGS (41)
  1. TOCILIZUMAB [Suspect]
     Route: 041
     Dates: start: 20081201, end: 20081201
  2. TOCILIZUMAB [Suspect]
     Route: 041
     Dates: start: 20090914, end: 20090914
  3. THIOLA [Concomitant]
     Dosage: FORM : PERORAL AGENT
     Route: 048
     Dates: end: 20090614
  4. MEILAX [Concomitant]
     Dosage: FORM : PERORAL AGENT
     Route: 048
     Dates: end: 20091207
  5. BONALON [Concomitant]
     Dosage: FORM : PERORAL AGENT
     Route: 048
     Dates: start: 20081230, end: 20091014
  6. HIRUDOID [Concomitant]
     Dosage: FORM : EXTERNAL PREPARATION  PROPER QUANTITY
     Route: 061
     Dates: start: 20081230, end: 20091014
  7. TOCILIZUMAB [Suspect]
     Indication: RHEUMATOID ARTHRITIS
     Route: 041
     Dates: start: 20080630, end: 20080630
  8. TOCILIZUMAB [Suspect]
     Route: 041
     Dates: start: 20081226, end: 20081226
  9. TOCILIZUMAB [Suspect]
     Route: 041
     Dates: start: 20090420, end: 20090420
  10. CONIEL [Concomitant]
     Dosage: FORM : PERORAL AGENT
     Route: 048
     Dates: start: 20081230, end: 20091029
  11. TAMSULOSIN HCL [Concomitant]
     Dosage: FORM : PERORAL AGENT
     Route: 048
     Dates: start: 20091030, end: 20091207
  12. TOCILIZUMAB [Suspect]
     Route: 041
     Dates: start: 20080929, end: 20080929
  13. TOCILIZUMAB [Suspect]
     Route: 041
     Dates: start: 20080825, end: 20080825
  14. TOCILIZUMAB [Suspect]
     Route: 041
     Dates: start: 20081027, end: 20081027
  15. TOCILIZUMAB [Suspect]
     Route: 041
     Dates: start: 20090126, end: 20090126
  16. TOCILIZUMAB [Suspect]
     Route: 041
     Dates: start: 20090810, end: 20090810
  17. WARFARIN [Suspect]
     Indication: ARRHYTHMIA
     Dosage: DOSE FORM: PERORAL AGENT
     Route: 048
  18. TOCILIZUMAB [Suspect]
     Route: 041
     Dates: start: 20080728, end: 20080728
  19. TOCILIZUMAB [Suspect]
     Route: 041
     Dates: start: 20090518, end: 20090518
  20. TOCILIZUMAB [Suspect]
     Route: 041
     Dates: start: 20090615, end: 20090615
  21. TOCILIZUMAB [Suspect]
     Route: 041
     Dates: start: 20090713, end: 20090713
  22. TOCILIZUMAB [Suspect]
     Route: 041
     Dates: start: 20091109, end: 20091109
  23. MOBIC [Concomitant]
     Dosage: FORM : PERORAL AGENT
     Route: 048
     Dates: end: 20091207
  24. ALFAROL [Concomitant]
     Dosage: FORM : PERORAL AGENT
     Route: 048
     Dates: start: 20081230, end: 20091207
  25. KETOPROFEN [Concomitant]
     Dosage: FORM : TAPE
     Route: 061
     Dates: end: 20081229
  26. ALFAROL [Concomitant]
     Dosage: DOSE : 0.5 MCL
     Route: 048
     Dates: start: 20081230, end: 20091207
  27. NORVASC [Concomitant]
     Route: 048
  28. TOCILIZUMAB [Suspect]
     Route: 041
     Dates: start: 20090323, end: 20090323
  29. AZULFIDINE [Concomitant]
     Dosage: FORM : PERORAL AGENT
     Route: 048
     Dates: end: 20081229
  30. COVERSYL [Concomitant]
     Dosage: FORM : PERORAL AGENT
     Route: 048
     Dates: end: 20091029
  31. GASTER D [Concomitant]
     Dosage: FORM : PERORAL AGENT
     Route: 048
     Dates: start: 20081230, end: 20090809
  32. VOLTAREN [Concomitant]
     Dosage: FORM : JELLY  PROPER QUANTITY
     Route: 003
     Dates: end: 20081229
  33. NAPAGELN [Concomitant]
     Dosage: PROPER QUANTITY
     Route: 003
     Dates: start: 20081230, end: 20091106
  34. BAKTAR [Concomitant]
     Dosage: FORM : PERORAL AGENT
     Route: 048
     Dates: start: 20081230, end: 20091207
  35. TOCILIZUMAB [Suspect]
     Route: 041
     Dates: start: 20090223, end: 20090223
  36. AZULFIDINE [Concomitant]
     Route: 048
     Dates: start: 20081230, end: 20090614
  37. ISONIAZID [Concomitant]
     Dosage: FORM : PERORAL AGENT
     Route: 048
     Dates: end: 20091207
  38. PREDNISOLONE [Concomitant]
     Route: 048
     Dates: end: 20091207
  39. LAC B [Concomitant]
     Dosage: FORM : PERORAL AGENT
     Route: 048
     Dates: end: 20091113
  40. ZYLORIC [Concomitant]
     Dosage: FORM : PERORAL AGENT
     Route: 048
     Dates: start: 20090713, end: 20091207
  41. PROTECADIN [Concomitant]
     Route: 048
     Dates: start: 20090810, end: 20091207

REACTIONS (4)
  - MUSCLE HAEMORRHAGE [None]
  - WHITE BLOOD CELL COUNT DECREASED [None]
  - ANAEMIA [None]
  - GAIT DISTURBANCE [None]
